FAERS Safety Report 18355072 (Version 4)
Quarter: 2022Q4

REPORT INFORMATION
  Report Type: Spontaneous
  Country: US (occurrence: US)
  Receive Date: 20201007
  Receipt Date: 20221011
  Transmission Date: 20230113
  Serious: No
  Sender: FDA-Public Use
  Company Number: US-PFIZER INC-2020383353

PATIENT
  Age: 64 Year
  Sex: Female
  Weight: 92.971 kg

DRUGS (9)
  1. IBRANCE [Suspect]
     Active Substance: PALBOCICLIB
     Indication: Breast cancer female
     Dosage: 75 MG, DAILY
     Route: 048
     Dates: start: 20200313
  2. IBRANCE [Suspect]
     Active Substance: PALBOCICLIB
     Dosage: DAILY 14 DAYS ON THEN 7 DAYS OFF
  3. XGEVA [Concomitant]
     Active Substance: DENOSUMAB
     Dosage: UNK
  4. CALCIUM\CHOLECALCIFEROL [Concomitant]
     Active Substance: CALCIUM\CHOLECALCIFEROL
     Dosage: UNK (CALCIUM + D 500MG-1000 TAB CHEW)
  5. IBUPROFEN [Concomitant]
     Active Substance: IBUPROFEN
     Dosage: UNK (IBUPROFEN 100 % POWDER)
  6. ONDANSETRON HCL [Concomitant]
     Active Substance: ONDANSETRON HYDROCHLORIDE
     Dosage: 24 MG
  7. MILK OF MAGNESIA [Concomitant]
     Active Substance: MAGNESIUM HYDROXIDE
     Dosage: UNK
  8. MORPHINE SULFATE [Concomitant]
     Active Substance: MORPHINE SULFATE
     Dosage: 30 MG
  9. ANASPAZ [Concomitant]
     Active Substance: HYOSCYAMINE SULFATE
     Dosage: 0.125 MG

REACTIONS (5)
  - Off label use [Unknown]
  - Product use issue [Unknown]
  - Abdominal discomfort [Unknown]
  - Malaise [Unknown]
  - White blood cell count decreased [Unknown]

NARRATIVE: CASE EVENT DATE: 20200101
